FAERS Safety Report 21767491 (Version 2)
Quarter: 2022Q4

REPORT INFORMATION
  Report Type: Spontaneous
  Country: ES (occurrence: ES)
  Receive Date: 20221222
  Receipt Date: 20221229
  Transmission Date: 20230113
  Serious: Yes (Other)
  Sender: FDA-Public Use
  Company Number: ES-GUERBET/L. FARMACEUTICOS GUERBET-ES-20220051

PATIENT
  Age: 42 Year
  Sex: Female

DRUGS (1)
  1. OPTIRAY [Suspect]
     Active Substance: IOVERSOL
     Indication: Product used for unknown indication
     Route: 065
     Dates: start: 20221114, end: 20221114

REACTIONS (1)
  - Air embolism [Unknown]

NARRATIVE: CASE EVENT DATE: 20221114
